FAERS Safety Report 22044847 (Version 1)
Quarter: 2023Q1

REPORT INFORMATION
  Report Type: Spontaneous
  Country: US (occurrence: None)
  Receive Date: 20230227
  Receipt Date: 20230227
  Transmission Date: 20230417
  Serious: Yes (unspecified)
  Sender: FDA-Public Use
  Company Number: None

PATIENT
  Age: 29 Year
  Sex: 0
  Weight: 63 kg

DRUGS (1)
  1. CHLORHEXIDINE [Suspect]
     Active Substance: CHLORHEXIDINE
     Indication: Surgery
     Dates: start: 20230222

REACTIONS (4)
  - Urticaria [None]
  - Rash vesicular [None]
  - Rash pustular [None]
  - Application site reaction [None]

NARRATIVE: CASE EVENT DATE: 20230222
